FAERS Safety Report 20090693 (Version 1)
Quarter: 2021Q4

REPORT INFORMATION
  Report Type: Spontaneous
  Country: US (occurrence: None)
  Receive Date: 20211119
  Receipt Date: 20211119
  Transmission Date: 20220303
  Serious: Yes (Hospitalization)
  Sender: FDA-Public Use
  Company Number: None

PATIENT
  Sex: Female
  Weight: 31 kg

DRUGS (4)
  1. FLUOROURACIL [Suspect]
     Active Substance: FLUOROURACIL
  2. CAMPTOSAR [Concomitant]
     Active Substance: IRINOTECAN HYDROCHLORIDE
  3. LEVUCOVORIN CALCIUM [Concomitant]
  4. OXALIPLATIN (ELOXATIN) [Concomitant]

REACTIONS (2)
  - Failure to thrive [None]
  - Weight decreased [None]

NARRATIVE: CASE EVENT DATE: 20211116
